FAERS Safety Report 25350012 (Version 2)
Quarter: 2025Q3

REPORT INFORMATION
  Report Type: Spontaneous
  Country: EU (occurrence: EU)
  Receive Date: 20250523
  Receipt Date: 20250803
  Transmission Date: 20251021
  Serious: Yes (Disabling)
  Sender: ALEXION PHARMACEUTICALS
  Company Number: None

PATIENT
  Age: 65 Year
  Sex: Male
  Weight: 64 kg

DRUGS (22)
  1. BUDESONIDE [Suspect]
     Active Substance: BUDESONIDE
     Indication: NSAID exacerbated respiratory disease
     Dosage: 1 INHALATION/J
     Dates: start: 201711
  2. CARBOPLATIN [Suspect]
     Active Substance: CARBOPLATIN
     Indication: Lung adenocarcinoma
  3. CARBOPLATIN [Suspect]
     Active Substance: CARBOPLATIN
     Dates: start: 20250512, end: 20250512
  4. CARBOPLATIN [Suspect]
     Active Substance: CARBOPLATIN
     Dates: start: 20250306, end: 20250306
  5. ALIMTA [Suspect]
     Active Substance: PEMETREXED DISODIUM
     Indication: Lung adenocarcinoma
  6. ALIMTA [Suspect]
     Active Substance: PEMETREXED DISODIUM
     Dates: start: 20250306, end: 20250306
  7. ALIMTA [Suspect]
     Active Substance: PEMETREXED DISODIUM
     Dates: start: 20250512, end: 20250512
  8. PREDNISONE [Suspect]
     Active Substance: PREDNISONE
     Indication: Behcet^s syndrome
     Dosage: TOUS LES MATINS
     Dates: start: 202501
  9. PREDNISONE [Suspect]
     Active Substance: PREDNISONE
     Dosage: 15 MG/J
     Dates: start: 201806
  10. PREDNISONE [Suspect]
     Active Substance: PREDNISONE
     Dosage: TOUS LES MATINS
     Dates: start: 20250512
  11. COLCHICINE [Concomitant]
     Active Substance: COLCHICINE
     Indication: Behcet^s syndrome
     Route: 065
  12. RAMIPRIL [Concomitant]
     Active Substance: RAMIPRIL
     Dosage: 1 CPR LE MATIN
  13. METHYLPREDNISOLONE [Suspect]
     Active Substance: METHYLPREDNISOLONE
     Indication: Behcet^s syndrome
     Dosage: 120 MG/J
     Dates: start: 20250128, end: 20250201
  14. METHOTREXATE [Concomitant]
     Active Substance: METHOTREXATE
     Dosage: 1 FOIS PAR SEMAINE LE MARDI
  15. FOLIC ACID [Concomitant]
     Active Substance: FOLIC ACID
     Dosage: 2 CPR LE MATIN TOUS LES JEUDIS
  16. RUPATADINE [Concomitant]
     Active Substance: RUPATADINE
     Dosage: 1 CP LE MATIN
  17. SERETIDE [Concomitant]
     Active Substance: FLUTICASONE PROPIONATE\SALMETEROL XINAFOATE
     Dosage: 2 BOUFF?ES MATIN ET SOIR
  18. ACETAMINOPHEN [Concomitant]
     Active Substance: ACETAMINOPHEN
  19. CICLOPIROX OLAMINE [Concomitant]
     Active Substance: CICLOPIROX OLAMINE
     Dosage: 1 FLACON PAR MOIS ET 1 SHAMPOING PAR SEMAINE EN TRAITANT LE VISAGE
     Route: 065
  20. BUDESONIDE [Concomitant]
     Active Substance: BUDESONIDE
  21. BACTRIM [Concomitant]
     Active Substance: SULFAMETHOXAZOLE\TRIMETHOPRIM
     Dosage: 800 MG TOUS LES MATINS
  22. BACTRIM [Concomitant]
     Active Substance: SULFAMETHOXAZOLE\TRIMETHOPRIM
     Dosage: 800 MG LE MATIN ET LE SOIR
     Dates: start: 20250327, end: 20250403

REACTIONS (1)
  - Tendon rupture [Not Recovered/Not Resolved]

NARRATIVE: CASE EVENT DATE: 20250405
